FAERS Safety Report 19866294 (Version 1)
Quarter: 2021Q3

REPORT INFORMATION
  Report Type: Report from Study
  Country: US (occurrence: US)
  Receive Date: 20210921
  Receipt Date: 20210921
  Transmission Date: 20211014
  Serious: Yes (Hospitalization, Other)
  Sender: FDA-Public Use
  Company Number: US-TAKEDA-US201804484

PATIENT
  Age: 60 Year
  Sex: Male

DRUGS (27)
  1. TEDUGLUTIDE [Suspect]
     Active Substance: TEDUGLUTIDE
     Indication: SHORT-BOWEL SYNDROME
     Dosage: 0.06 MILLIGRAM/KILOGRAM, QD
     Route: 065
     Dates: start: 20170724, end: 20181002
  2. TEDUGLUTIDE [Suspect]
     Active Substance: TEDUGLUTIDE
     Dosage: 0.06 MILLIGRAM/KILOGRAM, QD
     Route: 065
     Dates: start: 20181203
  3. TEDUGLUTIDE [Suspect]
     Active Substance: TEDUGLUTIDE
     Dosage: 0.06 MILLIGRAM/KILOGRAM, QD
     Route: 065
     Dates: start: 20160817, end: 20160829
  4. TEDUGLUTIDE [Suspect]
     Active Substance: TEDUGLUTIDE
     Dosage: 0.06 MILLIGRAM/KILOGRAM, QD
     Route: 065
     Dates: start: 20131212, end: 20160816
  5. TEDUGLUTIDE [Suspect]
     Active Substance: TEDUGLUTIDE
     Dosage: 0.06 MILLIGRAM/KILOGRAM, QD
     Route: 065
     Dates: start: 20181203
  6. TEDUGLUTIDE [Suspect]
     Active Substance: TEDUGLUTIDE
     Indication: SHORT-BOWEL SYNDROME
     Dosage: 0.06 MILLIGRAM/KILOGRAM, QD
     Route: 065
     Dates: start: 20170724, end: 20181002
  7. TEDUGLUTIDE [Suspect]
     Active Substance: TEDUGLUTIDE
     Indication: SHORT-BOWEL SYNDROME
     Dosage: 0.06 MILLIGRAM/KILOGRAM, QD
     Route: 065
     Dates: start: 20170724, end: 20181002
  8. TEDUGLUTIDE [Suspect]
     Active Substance: TEDUGLUTIDE
     Dosage: 0.06 MILLIGRAM/KILOGRAM, QD
     Route: 065
     Dates: start: 20160817, end: 20160829
  9. TEDUGLUTIDE [Suspect]
     Active Substance: TEDUGLUTIDE
     Dosage: 0.06 MILLIGRAM/KILOGRAM, QD
     Route: 065
     Dates: start: 20160830, end: 201707
  10. TEDUGLUTIDE [Suspect]
     Active Substance: TEDUGLUTIDE
     Dosage: 0.06 MILLIGRAM/KILOGRAM, QD
     Route: 065
     Dates: start: 20131212, end: 20160816
  11. TEDUGLUTIDE [Suspect]
     Active Substance: TEDUGLUTIDE
     Dosage: 0.06 MILLIGRAM/KILOGRAM, QD
     Route: 065
     Dates: start: 20181203
  12. LOVENOX [Concomitant]
     Active Substance: ENOXAPARIN SODIUM
     Indication: THROMBOSIS PROPHYLAXIS
     Dosage: UNK
     Route: 065
  13. CODEINE                            /00012602/ [Concomitant]
     Active Substance: CODEINE PHOSPHATE
     Indication: SHORT-BOWEL SYNDROME
  14. LOTRISONE [Concomitant]
     Active Substance: BETAMETHASONE DIPROPIONATE\CLOTRIMAZOLE
     Indication: STOMA SITE ABSCESS
     Dosage: 1 PERCENT, BID
     Route: 061
     Dates: start: 20210420
  15. WARFARIN SODIUM. [Concomitant]
     Active Substance: WARFARIN SODIUM
     Indication: ANTICOAGULANT THERAPY
     Dosage: 3 MILLIGRAM, TID
     Route: 048
     Dates: start: 20200310
  16. TEDUGLUTIDE [Suspect]
     Active Substance: TEDUGLUTIDE
     Indication: SHORT-BOWEL SYNDROME
     Dosage: 0.06 MILLIGRAM/KILOGRAM, QD
     Route: 065
     Dates: start: 20170724, end: 20181002
  17. TEDUGLUTIDE [Suspect]
     Active Substance: TEDUGLUTIDE
     Dosage: 0.06 MILLIGRAM/KILOGRAM, QD
     Route: 065
     Dates: start: 20160830, end: 201707
  18. TEDUGLUTIDE [Suspect]
     Active Substance: TEDUGLUTIDE
     Dosage: 0.06 MILLIGRAM/KILOGRAM, QD
     Route: 065
     Dates: start: 20160830, end: 201707
  19. TEDUGLUTIDE [Suspect]
     Active Substance: TEDUGLUTIDE
     Dosage: 0.06 MILLIGRAM/KILOGRAM, QD
     Route: 065
     Dates: start: 20160817, end: 20160829
  20. TEDUGLUTIDE [Suspect]
     Active Substance: TEDUGLUTIDE
     Dosage: 0.06 MILLIGRAM/KILOGRAM, QD
     Route: 065
     Dates: start: 20131212, end: 20160816
  21. CHOLECALCIFEROL [Concomitant]
     Active Substance: CHOLECALCIFEROL
     Indication: VITAMIN D DEFICIENCY
     Dosage: 2000 INTERNATIONAL UNIT, QD
     Route: 048
     Dates: start: 20200528
  22. TEDUGLUTIDE [Suspect]
     Active Substance: TEDUGLUTIDE
     Dosage: 0.06 MILLIGRAM/KILOGRAM, QD
     Route: 065
     Dates: start: 20160830, end: 201707
  23. TEDUGLUTIDE [Suspect]
     Active Substance: TEDUGLUTIDE
     Dosage: 0.06 MILLIGRAM/KILOGRAM, QD
     Route: 065
     Dates: start: 20160817, end: 20160829
  24. TEDUGLUTIDE [Suspect]
     Active Substance: TEDUGLUTIDE
     Dosage: 0.06 MILLIGRAM/KILOGRAM, QD
     Route: 065
     Dates: start: 20131212, end: 20160816
  25. TEDUGLUTIDE [Suspect]
     Active Substance: TEDUGLUTIDE
     Dosage: 0.06 MILLIGRAM/KILOGRAM, QD
     Route: 065
     Dates: start: 20181203
  26. ELIQUIS [Concomitant]
     Active Substance: APIXABAN
     Indication: THROMBOSIS PROPHYLAXIS
  27. CHOLECALCIFEROL [Concomitant]
     Active Substance: CHOLECALCIFEROL
     Dosage: 5000 INTERNATIONAL UNIT, 1/WEEK
     Route: 048
     Dates: start: 20200326, end: 20200521

REACTIONS (2)
  - Venoocclusive disease [Not Recovered/Not Resolved]
  - Vascular device occlusion [Recovered/Resolved]

NARRATIVE: CASE EVENT DATE: 20180118
